FAERS Safety Report 5361177-7 (Version None)
Quarter: 2007Q2

REPORT INFORMATION
  Report Type: 
  Country: None (occurrence: None)
  Receive Date: 20070618
  Receipt Date: 20070606
  Transmission Date: 20071010
  Serious: Yes (Hospitalization, Other)
  Sender: FDA-Public Use
  Company Number: US-ABBOTT-06P-163-0348272-00

PATIENT
  Weight: 104.5 kg

DRUGS (7)
  1. DEPAKOTE ER [Suspect]
     Indication: BIPOLAR I DISORDER
     Dates: start: 19980201, end: 20061012
  2. DEPAKOTE ER [Suspect]
     Dates: start: 20061027
  3. TYLOX [Suspect]
     Indication: BACK PAIN
     Dates: start: 20061011, end: 20061011
  4. OLANZAPINE [Concomitant]
     Indication: MANIA
     Dates: start: 20060301, end: 20070501
  5. CARBAMAZEPINE [Concomitant]
     Indication: BIPOLAR I DISORDER
     Dates: start: 20060301, end: 20070501
  6. LUNESTA [Concomitant]
     Indication: INSOMNIA
     Dates: start: 20060501, end: 20070101
  7. ATENOLOL W/HYDROCHLOROTHIAZIDE [Concomitant]
     Indication: HYPERTENSION
     Dates: start: 20060901

REACTIONS (5)
  - AMMONIA INCREASED [None]
  - ARRHYTHMIA [None]
  - BLOOD ALKALINE PHOSPHATASE INCREASED [None]
  - CONFUSIONAL STATE [None]
  - GASTROINTESTINAL STROMAL TUMOUR [None]
